FAERS Safety Report 22109073 (Version 3)
Quarter: 2023Q2

REPORT INFORMATION
  Report Type: Spontaneous
  Country: US (occurrence: US)
  Receive Date: 20230317
  Receipt Date: 20230501
  Transmission Date: 20230721
  Serious: Yes (Other)
  Sender: FDA-Public Use
  Company Number: US-AMGEN-USASP2019221593

PATIENT
  Age: 63 Year
  Sex: Female

DRUGS (6)
  1. REPATHA [Suspect]
     Active Substance: EVOLOCUMAB
     Indication: Hypercholesterolaemia
     Dosage: 140 MILLIGRAM, Q2WK
     Route: 065
     Dates: start: 2013
  2. REPATHA [Suspect]
     Active Substance: EVOLOCUMAB
     Dosage: UNK
     Route: 065
     Dates: start: 201902
  3. REPATHA [Suspect]
     Active Substance: EVOLOCUMAB
     Dosage: 140 MILLIGRAM
     Route: 065
     Dates: start: 201903
  4. SINEX [Concomitant]
     Active Substance: ACETAMINOPHEN\DOXYLAMINE SUCCINATE\PHENYLEPHRINE HYDROCHLORIDE
  5. LEFLUNOMIDE [Concomitant]
     Active Substance: LEFLUNOMIDE
     Indication: Rheumatoid arthritis
  6. NARCO [Concomitant]
     Indication: Pain

REACTIONS (5)
  - Rheumatoid arthritis [Recovering/Resolving]
  - Device difficult to use [Unknown]
  - Device use error [Unknown]
  - Injection site pain [Unknown]
  - Incorrect dose administered by device [Unknown]

NARRATIVE: CASE EVENT DATE: 20191026
